FAERS Safety Report 4420511-2 (Version None)
Quarter: 2004Q3

REPORT INFORMATION
  Report Type: 
  Country: None (occurrence: None)
  Receive Date: 20040809
  Receipt Date: 20040319
  Transmission Date: 20050211
  Serious: Yes (Disabling)
  Sender: FDA-Public Use
  Company Number: US-GLAXOSMITHKLINE-A0503516A

PATIENT
  Age: 21 Year
  Sex: Female
  Weight: 60.5 kg

DRUGS (2)
  1. PAXIL CR [Suspect]
     Dosage: 12.5MG PER DAY
     Route: 048
     Dates: start: 20040301, end: 20040309
  2. TRAZODONE HCL [Concomitant]

REACTIONS (2)
  - ABASIA [None]
  - TREMOR [None]
